FAERS Safety Report 16403356 (Version 1)
Quarter: 2019Q2

REPORT INFORMATION
  Report Type: Spontaneous
  Country: US (occurrence: US)
  Receive Date: 20190607
  Receipt Date: 20190607
  Transmission Date: 20190711
  Serious: No
  Sender: FDA-Public Use
  Company Number: US-IPSEN BIOPHARMACEUTICALS, INC.-2019-09005

PATIENT
  Age: 42 Year
  Sex: Female

DRUGS (5)
  1. SCULPTRA AESTHETIC [Suspect]
     Active Substance: POLYLACTIDE, L-
     Indication: PRODUCT USED FOR UNKNOWN INDICATION
     Dates: start: 2018, end: 2018
  2. RESTYLANE LYFT [Concomitant]
     Active Substance: HYALURONIC ACID
  3. DYSPORT [Suspect]
     Active Substance: ABOBOTULINUMTOXINA
     Indication: OFF LABEL USE
  4. DYSPORT [Suspect]
     Active Substance: ABOBOTULINUMTOXINA
     Indication: SKIN WRINKLING
     Route: 065
     Dates: start: 2018, end: 2018
  5. DYSPORT [Suspect]
     Active Substance: ABOBOTULINUMTOXINA
     Indication: SKIN WRINKLING

REACTIONS (3)
  - Micturition urgency [Unknown]
  - Micturition urgency [Recovered/Resolved]
  - Off label use [Unknown]

NARRATIVE: CASE EVENT DATE: 201804
